FAERS Safety Report 16479067 (Version 2)
Quarter: 2019Q3

REPORT INFORMATION
  Report Type: Other
  Country: US (occurrence: US)
  Receive Date: 20190626
  Receipt Date: 20190722
  Transmission Date: 20191004
  Serious: No
  Sender: FDA-Public Use
  Company Number: US-AMAG PHARMACEUTICALS, INC.-AMAG201903013

PATIENT
  Age: 35 Year
  Sex: Female

DRUGS (3)
  1. BONJESTA [Concomitant]
     Active Substance: DOXYLAMINE SUCCINATE\PYRIDOXINE HYDROCHLORIDE
     Indication: MORNING SICKNESS
     Dates: start: 20190410
  2. PRENATAL VITAMINS [Concomitant]
     Active Substance: VITAMINS
     Indication: PREGNANCY
     Dates: start: 20190410
  3. MAKENA [Suspect]
     Active Substance: HYDROXYPROGESTERONE CAPROATE
     Indication: PREMATURE DELIVERY
     Route: 058
     Dates: start: 20190502

REACTIONS (2)
  - Product administration error [Unknown]
  - Injection site pain [Recovered/Resolved]

NARRATIVE: CASE EVENT DATE: 201905
